FAERS Safety Report 10195138 (Version 1)
Quarter: 2014Q2

REPORT INFORMATION
  Report Type: Spontaneous
  Country: US (occurrence: US)
  Receive Date: 20140526
  Receipt Date: 20140526
  Transmission Date: 20141212
  Serious: No
  Sender: FDA-Public Use
  Company Number: US-PFIZER INC-2014141480

PATIENT
  Age: 28 Year
  Sex: Male
  Weight: 77.1 kg

DRUGS (4)
  1. LYRICA [Suspect]
     Indication: FIBROMYALGIA
     Dosage: 150 MG (BY TAKING TWO 75MG ORAL CAPSULE AT A TIME), 4X/DAY
     Route: 048
     Dates: start: 2008, end: 20140520
  2. CYMBALTA [Concomitant]
     Dosage: UNK
  3. TRAMADOL [Concomitant]
     Dosage: UNK
  4. LORAZEPAM [Concomitant]
     Dosage: UNK

REACTIONS (3)
  - Drug withdrawal syndrome [Unknown]
  - Pain [Unknown]
  - Insomnia [Unknown]
